FAERS Safety Report 24561095 (Version 1)
Quarter: 2024Q4

REPORT INFORMATION
  Report Type: Spontaneous
  Country: CA (occurrence: CA)
  Receive Date: 20241029
  Receipt Date: 20241029
  Transmission Date: 20250115
  Serious: Yes (Other)
  Sender: ROCHE
  Company Number: CA-002147023-NVSC2024CA208377

PATIENT
  Age: 57 Year
  Sex: Female

DRUGS (6)
  1. OMALIZUMAB [Suspect]
     Active Substance: OMALIZUMAB
     Indication: Chronic spontaneous urticaria
     Dosage: 300 MG, Q4W
     Route: 050
  2. CETIRIZINE HYDROCHLORIDE [Concomitant]
     Active Substance: CETIRIZINE HYDROCHLORIDE
     Indication: Urticaria
     Dosage: UNK
     Route: 065
  3. LORATADINE [Concomitant]
     Active Substance: LORATADINE
     Indication: Urticaria
     Dosage: 1 DOSAGE FORM, QD
     Route: 065
  4. LORATADINE [Concomitant]
     Active Substance: LORATADINE
     Dosage: 1 DOSAGE FORM, QD
     Route: 065
  5. ZANTAC [Concomitant]
     Active Substance: RANITIDINE HYDROCHLORIDE
     Indication: Urticaria
     Dosage: 1 DOSAGE FORM, QD
     Route: 065
  6. ZANTAC [Concomitant]
     Active Substance: RANITIDINE HYDROCHLORIDE
     Dosage: 1 DOSAGE FORM, QD
     Route: 065

REACTIONS (3)
  - Brain neoplasm [Unknown]
  - Cerebral haematoma [Unknown]
  - Cerebral haemorrhage [Unknown]
